FAERS Safety Report 4362209-5 (Version None)
Quarter: 2004Q2

REPORT INFORMATION
  Report Type: 
  Country: None (occurrence: None)
  Receive Date: 20040517
  Receipt Date: 20040506
  Transmission Date: 20050107
  Serious: Yes (Hospitalization)
  Sender: FDA-Public Use
  Company Number: 04P-087-0259796-00

PATIENT
  Age: 85 Year
  Sex: Female

DRUGS (3)
  1. BIAXIN [Suspect]
     Indication: BRONCHITIS ACUTE
     Dosage: 400 MG, 1 IN 1 D, PER ORAL
     Route: 048
     Dates: start: 20040403, end: 20040407
  2. GATIFLOXACIN [Suspect]
     Indication: BRONCHITIS ACUTE
     Dosage: 200 MG, 2 IN 1 D, PER ORAL
     Route: 048
     Dates: start: 20040406, end: 20040407
  3. GATIFLOXACIN [Suspect]
     Indication: C-REACTIVE PROTEIN INCREASED
     Dosage: 200 MG, 2 IN 1 D, PER ORAL
     Route: 048
     Dates: start: 20040406, end: 20040407

REACTIONS (2)
  - DELIRIUM [None]
  - INCOHERENT [None]
